FAERS Safety Report 20616607 (Version 1)
Quarter: 2022Q1

REPORT INFORMATION
  Report Type: Spontaneous
  Country: US (occurrence: None)
  Receive Date: 20220321
  Receipt Date: 20220321
  Transmission Date: 20220423
  Serious: No
  Sender: FDA-Public Use
  Company Number: None

PATIENT
  Sex: Female

DRUGS (1)
  1. DIMETHYL FUMARATE\ETHYL FUMARATE [Suspect]
     Active Substance: DIMETHYL FUMARATE\ETHYL FUMARATE
     Indication: Multiple sclerosis
     Dosage: FREQUENCY : TWICE A DAY;?
     Route: 048
     Dates: start: 20220201

REACTIONS (4)
  - Flushing [None]
  - Dyspepsia [None]
  - Nausea [None]
  - Therapy non-responder [None]
